FAERS Safety Report 14974706 (Version 1)
Quarter: 2018Q2

REPORT INFORMATION
  Report Type: Report from Study
  Country: PH (occurrence: PH)
  Receive Date: 20180605
  Receipt Date: 20180605
  Transmission Date: 20180711
  Serious: Yes (Life-Threatening)
  Sender: FDA-Public Use
  Company Number: PH-OTSUKA-2018_014458

PATIENT
  Sex: Male

DRUGS (2)
  1. CILOSTAZOL. [Suspect]
     Active Substance: CILOSTAZOL
     Indication: ANTICOAGULANT THERAPY
     Dosage: UNK, BID (FOR CONTINOUS MEDICATION)
     Route: 065
     Dates: start: 20180412
  2. MINIDIAB [Suspect]
     Active Substance: GLIPIZIDE
     Indication: BLOOD GLUCOSE INCREASED
     Dosage: 2.5 MG, BID
     Route: 065
     Dates: start: 20180412

REACTIONS (2)
  - Thrombosis [Not Recovered/Not Resolved]
  - Product use in unapproved indication [Unknown]

NARRATIVE: CASE EVENT DATE: 20180412
